FAERS Safety Report 15999905 (Version 2)
Quarter: 2019Q1

REPORT INFORMATION
  Report Type: Report from Study
  Country: US (occurrence: US)
  Receive Date: 20190225
  Receipt Date: 20190311
  Transmission Date: 20190418
  Serious: Yes (Hospitalization)
  Sender: FDA-Public Use
  Company Number: PHHO2019US002078

PATIENT
  Age: 54 Year
  Sex: Female
  Weight: 74.92 kg

DRUGS (5)
  1. ASA [Concomitant]
     Active Substance: ASPIRIN
     Indication: CORONARY ARTERY DISEASE
     Dosage: 325 MG, QD
     Route: 048
     Dates: start: 2018
  2. BLINDED PLACEBO [Suspect]
     Active Substance: INVESTIGATIONAL PRODUCT
     Indication: PROPHYLAXIS
     Dosage: CODE NOT BROKEN
     Route: 058
  3. ACZ885 [Suspect]
     Active Substance: CANAKINUMAB
     Indication: PROPHYLAXIS
     Dosage: 150 MG, UNK
     Route: 058
     Dates: start: 20170112
  4. BLINDED ACZ885 [Suspect]
     Active Substance: CANAKINUMAB
     Indication: PROPHYLAXIS
     Dosage: CODE NOT BROKEN
     Route: 058
  5. BLINDED NO TREATMENT RECEIVED [Suspect]
     Active Substance: INVESTIGATIONAL PRODUCT
     Indication: PROPHYLAXIS
     Dosage: CODE NOT BROKEN
     Route: 058

REACTIONS (2)
  - Gastritis viral [Recovered/Resolved]
  - Constipation [Recovered/Resolved]

NARRATIVE: CASE EVENT DATE: 20180913
